FAERS Safety Report 6567754-X (Version None)
Quarter: 2010Q1

REPORT INFORMATION
  Report Type: 
  Country: None (occurrence: None)
  Receive Date: 20100203
  Receipt Date: 20100127
  Transmission Date: 20100710
  Serious: Yes (Other)
  Sender: FDA-Public Use
  Company Number: JP-PFIZER INC-2010012720

PATIENT
  Age: 56 Year
  Sex: Female

DRUGS (1)
  1. MEDROXYPROGESTERONE ACETATE AND MEDROXYPROGESTERONE [Suspect]
     Indication: BREAST CANCER METASTATIC
     Dosage: UNK MG, UNK

REACTIONS (1)
  - PALPITATIONS [None]
